FAERS Safety Report 9230291 (Version 1)
Quarter: 2013Q1

REPORT INFORMATION
  Report Type: Spontaneous
  Country: US (occurrence: None)
  Receive Date: 20121023
  Receipt Date: 20121023
  Transmission Date: 20140127
  Serious: No
  Sender: FDA-Public Use
  Company Number: 2012AL000074

PATIENT
  Age: 76 Year
  Sex: Male

DRUGS (1)
  1. FOLOTYN ( PRALATREXATE) [Suspect]
     Indication: T-CELL LYMPHOMA

REACTIONS (3)
  - Stomatitis [None]
  - Oral pain [None]
  - Decreased appetite [None]
